FAERS Safety Report 15635426 (Version 1)
Quarter: 2018Q4

REPORT INFORMATION
  Report Type: Other
  Country: US (occurrence: US)
  Receive Date: 20181120
  Receipt Date: 20181120
  Transmission Date: 20190205
  Serious: Yes (Other)
  Sender: FDA-Public Use
  Company Number: US-VISTAPHARM, INC.-VER201811-000948

PATIENT
  Age: 76 Year
  Sex: Male

DRUGS (1)
  1. ALBUTEROL. [Suspect]
     Active Substance: ALBUTEROL
     Indication: HYPERKALAEMIA
     Dosage: 12 MG
     Route: 042

REACTIONS (4)
  - Product use in unapproved indication [Unknown]
  - Incorrect route of product administration [Unknown]
  - Lactic acidosis [Unknown]
  - Shock [Unknown]
